FAERS Safety Report 21267422 (Version 3)
Quarter: 2022Q4

REPORT INFORMATION
  Report Type: Report from Study
  Country: US (occurrence: None)
  Receive Date: 20220829
  Receipt Date: 20221115
  Transmission Date: 20230113
  Serious: Yes (Hospitalization)
  Sender: FDA-Public Use
  Company Number: US-ROCHE-3111637

PATIENT
  Age: 71 Year
  Sex: Female
  Weight: 62.4 kg

DRUGS (15)
  1. ALECTINIB [Suspect]
     Active Substance: ALECTINIB
     Indication: Colon cancer metastatic
     Dosage: DOSE LAST STUDY DRUG ADMIN PRIOR SAE IS 600 MG ON 17/APR/2022?150 MG?ON 30/MAY/2022, MOST RECENT DOS
     Route: 048
     Dates: start: 20220517
  2. CITALOPRAM [Concomitant]
     Active Substance: CITALOPRAM HYDROBROMIDE
     Indication: Depression
     Route: 048
     Dates: start: 2013
  3. METAMUCIL [Concomitant]
     Active Substance: PLANTAGO SEED
     Indication: Nutritional supplementation
     Route: 048
     Dates: start: 2021
  4. PANTOPRAZOLE [Concomitant]
     Active Substance: PANTOPRAZOLE
     Indication: Gastrooesophageal reflux disease
     Route: 048
     Dates: start: 202105
  5. TRAZODONE [Concomitant]
     Active Substance: TRAZODONE HYDROCHLORIDE
     Indication: Insomnia
     Route: 048
     Dates: start: 202105
  6. PROPAFENONE [Concomitant]
     Active Substance: PROPAFENONE
     Indication: Atrial fibrillation
     Route: 048
     Dates: start: 202107
  7. COLACE [Concomitant]
     Active Substance: DOCUSATE SODIUM
     Indication: Constipation
     Route: 048
     Dates: start: 202109
  8. ELIQUIS [Concomitant]
     Active Substance: APIXABAN
     Indication: Atrial fibrillation
     Route: 048
     Dates: start: 20220328
  9. DULCOLAX STOOL SOFTENER [Concomitant]
     Active Substance: DOCUSATE SODIUM
     Indication: Constipation
     Route: 048
     Dates: start: 202106
  10. ACETAMINOPHEN [Concomitant]
     Active Substance: ACETAMINOPHEN
     Indication: Prophylaxis
     Route: 048
     Dates: start: 20220531
  11. LABETALOL [Concomitant]
     Active Substance: LABETALOL\LABETALOL HYDROCHLORIDE
     Indication: Prophylaxis
     Route: 048
     Dates: start: 20220531
  12. MAGNESIUM [Concomitant]
     Active Substance: MAGNESIUM
     Indication: Prophylaxis
     Route: 048
     Dates: start: 20220531
  13. POLYETHYLENE GLYCOL [Concomitant]
     Active Substance: POLYETHYLENE GLYCOL
     Indication: Prophylaxis
     Route: 048
     Dates: start: 20220531
  14. MELATONIN [Concomitant]
     Active Substance: MELATONIN
     Indication: Prophylaxis
     Route: 001
     Dates: start: 20220331
  15. ONDANSETRON [Concomitant]
     Active Substance: ONDANSETRON
     Indication: Prophylaxis
     Route: 048
     Dates: start: 20220531

REACTIONS (1)
  - Pneumonia [Recovered/Resolved]

NARRATIVE: CASE EVENT DATE: 20220530
